FAERS Safety Report 11321375 (Version 1)
Quarter: 2015Q3

REPORT INFORMATION
  Report Type: Spontaneous
  Country: GB (occurrence: GB)
  Receive Date: 20150729
  Receipt Date: 20150729
  Transmission Date: 20151125
  Serious: Yes (Hospitalization)
  Sender: FDA-Public Use
  Company Number: GB-SA-2015SA109009

PATIENT
  Age: 91 Year

DRUGS (10)
  1. FYBOGEL [Concomitant]
     Active Substance: PLANTAGO OVATA SEED
     Dosage: AS DIRECTED.
  2. PROCHLORPERAZINE. [Concomitant]
     Active Substance: PROCHLORPERAZINE
     Dosage: TWICE A DAY AS NEEDED.
     Route: 002
     Dates: start: 20150706
  3. QUININE [Concomitant]
     Active Substance: QUININE
     Dosage: EACH NIGHT.
  4. TRIMETHOPRIM. [Concomitant]
     Active Substance: TRIMETHOPRIM
     Dates: start: 20150706
  5. BENDROFLUMETHIAZIDE [Suspect]
     Active Substance: BENDROFLUMETHIAZIDE
     Route: 065
     Dates: start: 1995, end: 20150709
  6. DIETHYLAMINE SALICYLATE [Concomitant]
     Active Substance: DIETHYLAMINE SALICYLATE
  7. ACICLOVIR [Concomitant]
     Active Substance: ACYCLOVIR
     Dates: start: 20150630, end: 20150706
  8. VISCOTEARS [Concomitant]
     Active Substance: CARBOMER
     Dosage: 2MG/G.
  9. DOXAZOSIN [Concomitant]
     Active Substance: DOXAZOSIN\DOXAZOSIN MESYLATE
     Dates: start: 20150319
  10. IRBESARTAN. [Suspect]
     Active Substance: IRBESARTAN
     Route: 065

REACTIONS (2)
  - Hyponatraemia [Recovering/Resolving]
  - Syncope [Recovering/Resolving]
